FAERS Safety Report 19077556 (Version 2)
Quarter: 2021Q4

REPORT INFORMATION
  Report Type: Spontaneous
  Country: CA (occurrence: CA)
  Receive Date: 20210331
  Receipt Date: 20211026
  Transmission Date: 20220303
  Serious: Yes (Life-Threatening, Hospitalization, Other)
  Sender: FDA-Public Use
  Company Number: CA-MLMSERVICE-20210315-2776656-1

PATIENT
  Age: 36 Year
  Sex: Female

DRUGS (2)
  1. TESTOSTERONE [Suspect]
     Active Substance: TESTOSTERONE
     Indication: Gender reassignment therapy
     Dosage: UNK
  2. TESTOSTERONE [Suspect]
     Active Substance: TESTOSTERONE
     Indication: Gender reassignment therapy
     Dosage: EXOGENOUS
     Route: 062

REACTIONS (2)
  - Metastases to uterus [Recovering/Resolving]
  - Ovarian endometrioid carcinoma [Recovering/Resolving]
